FAERS Safety Report 23868169 (Version 1)
Quarter: 2024Q2

REPORT INFORMATION
  Report Type: Spontaneous
  Country: US (occurrence: US)
  Receive Date: 20240517
  Receipt Date: 20240517
  Transmission Date: 20240715
  Serious: Yes (Hospitalization)
  Sender: FDA-Public Use
  Company Number: US-SA-SAC20240514001038

PATIENT
  Age: 11 Month
  Sex: Male
  Weight: 3.26 kg

DRUGS (1)
  1. KEVZARA [Suspect]
     Active Substance: SARILUMAB

REACTIONS (6)
  - Electroencephalogram abnormal [Unknown]
  - Hypotonia [Unknown]
  - Hypoperfusion [Unknown]
  - Developmental delay [Unknown]
  - White matter lesion [Unknown]
  - Foetal exposure during pregnancy [Unknown]

NARRATIVE: CASE EVENT DATE: 20230801
